FAERS Safety Report 16371827 (Version 3)
Quarter: 2021Q3

REPORT INFORMATION
  Report Type: Spontaneous
  Country: IT (occurrence: IT)
  Receive Date: 20190530
  Receipt Date: 20210720
  Transmission Date: 20211014
  Serious: Yes (Life-Threatening)
  Sender: FDA-Public Use
  Company Number: IT-TEVA-2019-IT-1055811

PATIENT
  Age: 65 Year
  Sex: Male

DRUGS (2)
  1. PYRIDOSTIGMINE [Suspect]
     Active Substance: PYRIDOSTIGMINE
     Indication: MYASTHENIC SYNDROME
     Dosage: 240 MILLIGRAM DAILY;
     Route: 065
  2. IMATINIB. [Suspect]
     Active Substance: IMATINIB MESYLATE
     Indication: GASTROINTESTINAL STROMAL TUMOUR
     Dosage: 400 MILLIGRAM DAILY;
     Route: 065

REACTIONS (3)
  - Respiratory failure [Recovered/Resolved]
  - Drug ineffective [Unknown]
  - Myasthenic syndrome [Recovered/Resolved]
